FAERS Safety Report 24879487 (Version 7)
Quarter: 2025Q4

REPORT INFORMATION
  Report Type: Spontaneous
  Country: US (occurrence: US)
  Receive Date: 20250123
  Receipt Date: 20251005
  Transmission Date: 20260117
  Serious: No
  Sender: SANOFI AVENTIS
  Company Number: US-SA-2025SA020244

PATIENT
  Age: 59 Year
  Sex: Female
  Weight: 51.71 kg

DRUGS (5)
  1. REZUROCK [Suspect]
     Active Substance: BELUMOSUDIL
     Indication: Chronic graft versus host disease
     Dosage: 200 MG, QD
     Route: 048
     Dates: start: 20230829
  2. REZUROCK [Suspect]
     Active Substance: BELUMOSUDIL
     Indication: Transplantation complication
     Dosage: 200 MG, BID
     Route: 048
  3. TRAMADOL [Concomitant]
     Active Substance: TRAMADOL
     Dosage: 1 DF, PRN
     Route: 048
  4. ESTRADIOL [Concomitant]
     Active Substance: ESTRADIOL
     Dosage: UNK UNK, QW
  5. BACLOFEN [Concomitant]
     Active Substance: BACLOFEN
     Dosage: UNK

REACTIONS (15)
  - Insomnia [Unknown]
  - Gastrointestinal disorder [Unknown]
  - Eye disorder [Unknown]
  - Weight decreased [Unknown]
  - Eating disorder [Unknown]
  - Pain [Unknown]
  - Pain in extremity [Unknown]
  - Blood cholesterol increased [Unknown]
  - Platelet count increased [Unknown]
  - Toe operation [Unknown]
  - Nausea [Unknown]
  - Hysterectomy [Unknown]
  - Headache [Unknown]
  - Product use in unapproved indication [Unknown]
  - Inappropriate schedule of product administration [Unknown]

NARRATIVE: CASE EVENT DATE: 20230829
